FAERS Safety Report 7294018-1 (Version None)
Quarter: 2011Q1

REPORT INFORMATION
  Report Type: 
  Country: None (occurrence: None)
  Receive Date: 20110215
  Receipt Date: 20110207
  Transmission Date: 20110831
  Serious: Yes (Other)
  Sender: FDA-Public Use
  Company Number: US-ROCHE-719297

PATIENT
  Sex: Female
  Weight: 52.2 kg

DRUGS (2)
  1. DESOGEN [Concomitant]
  2. ACCUTANE [Suspect]
     Indication: ACNE
     Dosage: DOSE: ACCUTANE 20 MG TWO IN MORNING AND ONE IN NIGHT
     Route: 048
     Dates: start: 19990106, end: 19990501

REACTIONS (5)
  - INFLAMMATORY BOWEL DISEASE [None]
  - HAEMORRHOIDS [None]
  - STRESS [None]
  - CROHN'S DISEASE [None]
  - COLITIS ULCERATIVE [None]
